FAERS Safety Report 6740695-0 (Version None)
Quarter: 2010Q2

REPORT INFORMATION
  Report Type: 
  Country: None (occurrence: None)
  Receive Date: 20100521
  Receipt Date: 20100422
  Transmission Date: 20101027
  Serious: Yes (Other)
  Sender: FDA-Public Use
  Company Number: 310001J10DEU

PATIENT
  Sex: Female
  Weight: 48 kg

DRUGS (2)
  1. GONAL-F [Suspect]
     Indication: IN VITRO FERTILISATION
     Dosage: 75 IU, END OF DAY, SUBCUTANEOUS
     Route: 058
     Dates: start: 19990922, end: 19991004
  2. SYNARELIA (NAFARELIN) [Concomitant]

REACTIONS (1)
  - BREAST CANCER FEMALE [None]
